FAERS Safety Report 9513212 (Version 2)
Quarter: 2013Q4

REPORT INFORMATION
  Report Type: Spontaneous
  Country: US (occurrence: US)
  Receive Date: 20130910
  Receipt Date: 20131018
  Transmission Date: 20140711
  Serious: No
  Sender: FDA-Public Use
  Company Number: US-PFIZER INC-2013258645

PATIENT
  Age: 65 Year
  Sex: Female
  Weight: 77.1 kg

DRUGS (5)
  1. LYRICA [Suspect]
     Indication: FIBROMYALGIA
     Dosage: 25 MG, 1X/DAY
     Dates: start: 20130905
  2. LYRICA [Suspect]
     Indication: NERVE INJURY
  3. ALTACE [Concomitant]
     Indication: HYPERTENSION
     Dosage: UNK
  4. SYNTHROID [Concomitant]
     Indication: THYROID DISORDER
     Dosage: UNK
  5. NUCYNTA [Concomitant]
     Indication: PAIN
     Dosage: UNK

REACTIONS (5)
  - Abdominal pain upper [Unknown]
  - Abdominal distension [Unknown]
  - Asthenia [Unknown]
  - Fall [Unknown]
  - Hyperhidrosis [Unknown]
